FAERS Safety Report 11099638 (Version 1)
Quarter: 2015Q2

REPORT INFORMATION
  Report Type: Spontaneous
  Country: US (occurrence: None)
  Receive Date: 20150507
  Receipt Date: 20150507
  Transmission Date: 20150821
  Serious: Yes (Other)
  Sender: FDA-Public Use
  Company Number: None

PATIENT
  Age: 74 Year
  Sex: Female
  Weight: 79.1 kg

DRUGS (1)
  1. ZOMETA [Suspect]
     Active Substance: ZOLEDRONIC ACID
     Indication: OSTEOPOROSIS
     Route: 042
     Dates: start: 201206

REACTIONS (14)
  - Oropharyngeal pain [None]
  - Arthralgia [None]
  - Asthenia [None]
  - Alopecia [None]
  - Rash [None]
  - Swelling [None]
  - Pain [None]
  - Pruritus [None]
  - Muscular weakness [None]
  - Fatigue [None]
  - Peripheral swelling [None]
  - Joint swelling [None]
  - Back pain [None]
  - Insomnia [None]

NARRATIVE: CASE EVENT DATE: 201206
